FAERS Safety Report 5297540-2 (Version None)
Quarter: 2007Q2

REPORT INFORMATION
  Report Type: 
  Country: None (occurrence: None)
  Receive Date: 20070416
  Receipt Date: 20070402
  Transmission Date: 20071010
  Serious: Yes (Other)
  Sender: FDA-Public Use
  Company Number: PHEH2007US03958

PATIENT
  Age: 45 Year
  Sex: Male

DRUGS (4)
  1. DIURETICS [Concomitant]
     Indication: HYPERTENSION
     Dates: start: 20060901, end: 20060901
  2. BETA BLOCKING AGENTS [Concomitant]
     Dates: start: 20060901
  3. CALCIUM CHANNEL BLOCKERS [Concomitant]
     Dates: start: 20060901
  4. ZELNORM [Suspect]
     Indication: IRRITABLE BOWEL SYNDROME
     Dosage: 6 MG, BID
     Dates: start: 20060901

REACTIONS (5)
  - DEHYDRATION [None]
  - FLUID REPLACEMENT [None]
  - PALPITATIONS [None]
  - RENAL IMPAIRMENT [None]
  - VOMITING [None]
